FAERS Safety Report 13945737 (Version 1)
Quarter: 2017Q3

REPORT INFORMATION
  Report Type: Spontaneous
  Country: DE (occurrence: DE)
  Receive Date: 20170907
  Receipt Date: 20170907
  Transmission Date: 20171128
  Serious: Yes (Disabling, Other)
  Sender: FDA-Public Use
  Company Number: DE-ASTRAZENECA-2017SE73212

PATIENT
  Age: 20883 Day
  Sex: Male
  Weight: 96 kg

DRUGS (1)
  1. FORXIGA [Suspect]
     Active Substance: DAPAGLIFLOZIN
     Indication: TYPE 2 DIABETES MELLITUS
     Dosage: 10 MG
     Route: 048
     Dates: start: 20130219

REACTIONS (2)
  - Phimosis [Recovered/Resolved with Sequelae]
  - Balanoposthitis [Recovered/Resolved with Sequelae]

NARRATIVE: CASE EVENT DATE: 20150924
